FAERS Safety Report 22200920 (Version 1)
Quarter: 2023Q2

REPORT INFORMATION
  Report Type: Other
  Country: CN (occurrence: CN)
  Receive Date: 20230412
  Receipt Date: 20230412
  Transmission Date: 20230721
  Serious: Yes (Other)
  Sender: FDA-Public Use
  Company Number: CN-ASTELLAS-2023US011079

PATIENT
  Age: 34 Year
  Sex: Female
  Weight: 45 kg

DRUGS (3)
  1. PROGRAF [Suspect]
     Active Substance: TACROLIMUS
     Indication: Bone marrow transplant rejection
     Dosage: 1 MG, OTHER (EVERY 8 DAYS)
     Route: 048
     Dates: start: 20220301, end: 20230316
  2. ENTECAVIR [Concomitant]
     Active Substance: ENTECAVIR
     Indication: Bone marrow transplant rejection
     Dosage: 0.5 MG, ONCE DAILY
     Route: 048
     Dates: start: 20220301, end: 20230316
  3. PREDNISONE ACETATE [Concomitant]
     Active Substance: PREDNISONE ACETATE
     Indication: Bone marrow transplant rejection
     Route: 048
     Dates: start: 20220301, end: 20230316

REACTIONS (8)
  - Acute hepatic failure [Recovering/Resolving]
  - Platelet count decreased [Recovering/Resolving]
  - Nausea [Recovering/Resolving]
  - Vomiting [Recovering/Resolving]
  - Chronic hepatitis B [Unknown]
  - Asthenia [Recovering/Resolving]
  - Decreased appetite [Not Recovered/Not Resolved]
  - Off label use [Unknown]

NARRATIVE: CASE EVENT DATE: 20220301
